FAERS Safety Report 5201044-2 (Version None)
Quarter: 2007Q1

REPORT INFORMATION
  Report Type: 
  Country: None (occurrence: None)
  Receive Date: 20070108
  Receipt Date: 20070104
  Transmission Date: 20070707
  Serious: Yes (Hospitalization)
  Sender: FDA-Public Use
  Company Number: US-ELI_LILLY_AND_COMPANY-US200605006010

PATIENT
  Sex: Male
  Weight: 101.13 kg

DRUGS (11)
  1. ZYPREXA [Suspect]
     Indication: POST-TRAUMATIC STRESS DISORDER
     Dosage: 20 MG, UNK
     Dates: start: 19970728, end: 19970905
  2. ZYPREXA [Suspect]
     Dosage: 10 MG, 2/D
     Dates: start: 19970905
  3. ZYPREXA [Suspect]
     Dosage: 10 MG, UNK
     Dates: start: 20020122, end: 20050719
  4. ARIPIPRAZOLE [Concomitant]
     Dates: start: 20050101
  5. QUETIAPINE FUMARATE [Concomitant]
     Dates: start: 20000301
  6. RISPERIDONE [Concomitant]
     Dates: start: 19980101
  7. DEPAKOTE [Concomitant]
     Dates: start: 19980101
  8. DOXEPIN HCL [Concomitant]
     Dates: start: 19990101, end: 20000101
  9. PAROXETINE HCL [Concomitant]
     Dates: start: 19970101, end: 19980101
  10. SERTRALINE [Concomitant]
     Dates: start: 20000101
  11. FUROSEMIDE [Concomitant]
     Dates: start: 20040101

REACTIONS (6)
  - ABSCESS [None]
  - CELLULITIS [None]
  - CEREBROVASCULAR ACCIDENT [None]
  - DIABETES MELLITUS [None]
  - NEUROPATHY [None]
  - WEIGHT INCREASED [None]
